FAERS Safety Report 8015854-X (Version None)
Quarter: 2011Q4

REPORT INFORMATION
  Report Type: 
  Country: None (occurrence: None)
  Receive Date: 20111230
  Receipt Date: 20111103
  Transmission Date: 20120403
  Serious: Yes (Death, Other)
  Sender: FDA-Public Use
  Company Number: PHHY2011FR101345

PATIENT
  Age: 42 Year
  Sex: Male

DRUGS (5)
  1. SORAFENIB [Suspect]
  2. EVEROLIMUS [Suspect]
  3. FOTEMUSTINE [Suspect]
  4. IPILIMUMAB [Suspect]
     Dosage: 3 MG/KG, EVERY 3 WEEKS
  5. CYCLOPHOSPHAMIDE [Suspect]

REACTIONS (11)
  - METASTASES TO LYMPH NODES [None]
  - ACQUIRED HAEMOPHILIA [None]
  - NEOPLASM MALIGNANT [None]
  - METASTASES TO BONE [None]
  - HAEMOGLOBIN DECREASED [None]
  - NEOPLASM PROGRESSION [None]
  - METASTASES TO KIDNEY [None]
  - HAEMATURIA [None]
  - URINARY BLADDER HAEMORRHAGE [None]
  - DEATH [None]
  - METASTASES TO LIVER [None]
